FAERS Safety Report 8388399-5 (Version None)
Quarter: 2012Q2

REPORT INFORMATION
  Report Type: 
  Country: None (occurrence: None)
  Receive Date: 20120525
  Receipt Date: 20120513
  Transmission Date: 20120825
  Serious: Yes (Hospitalization, Other)
  Sender: FDA-Public Use
  Company Number: MY-ELI_LILLY_AND_COMPANY-MY201204004420

PATIENT
  Age: 24 Year
  Sex: Male

DRUGS (4)
  1. VALPROIC ACID [Concomitant]
     Indication: AFFECTIVE DISORDER
     Dosage: 1000 MG, UNK
  2. ZYPREXA [Suspect]
     Dosage: 10 DF, UNKNOWN
     Route: 048
     Dates: start: 20120406, end: 20120406
  3. ZYPREXA [Suspect]
     Dosage: 15 MG, UNKNOWN
     Route: 048
     Dates: end: 20120401
  4. ZYPREXA [Suspect]
     Indication: RESTLESSNESS
     Dosage: 10 MG, UNKNOWN
     Route: 048

REACTIONS (8)
  - ELECTROCARDIOGRAM QT PROLONGED [None]
  - VOMITING [None]
  - INTENTIONAL OVERDOSE [None]
  - INTENTIONAL DRUG MISUSE [None]
  - TREMOR [None]
  - DIZZINESS [None]
  - OFF LABEL USE [None]
  - ATAXIA [None]
